FAERS Safety Report 17239988 (Version 1)
Quarter: 2020Q1

REPORT INFORMATION
  Report Type: Spontaneous
  Country: BE (occurrence: BE)
  Receive Date: 20200107
  Receipt Date: 20200107
  Transmission Date: 20200409
  Serious: Yes (Death, Other)
  Sender: FDA-Public Use
  Company Number: BE-ROCHE-2507871

PATIENT
  Age: 57 Year
  Sex: Male
  Weight: 66.6 kg

DRUGS (1)
  1. MABTHERA [Suspect]
     Active Substance: RITUXIMAB
     Indication: HIGH-GRADE B-CELL LYMPHOMA
     Route: 065

REACTIONS (2)
  - Thrombocytopenia [Unknown]
  - Death [Fatal]

NARRATIVE: CASE EVENT DATE: 20191223
